FAERS Safety Report 9494550 (Version 2)
Quarter: 2013Q4

REPORT INFORMATION
  Report Type: Report from Study
  Country: BR (occurrence: BR)
  Receive Date: 20130903
  Receipt Date: 20131001
  Transmission Date: 20140711
  Serious: Yes (Other)
  Sender: FDA-Public Use
  Company Number: PHHY2013BR094953

PATIENT
  Sex: Female
  Weight: 63 kg

DRUGS (3)
  1. SANDOSTATIN LAR [Suspect]
     Indication: ACROMEGALY
     Dosage: 20 MG, ONCE MONTHLY
  2. SANDOSTATIN LAR [Suspect]
     Dosage: 20 MG, EVERY 40 DAYS
     Dates: start: 200409
  3. SANDOSTATIN LAR [Suspect]
     Dosage: 20 MG, ONCE MONTHLY

REACTIONS (8)
  - Diabetes mellitus [Not Recovered/Not Resolved]
  - Skin exfoliation [Not Recovered/Not Resolved]
  - Inflammation [Not Recovered/Not Resolved]
  - Hypertension [Recovered/Resolved]
  - Blood cholesterol increased [Recovered/Resolved]
  - Psoriasis [Not Recovered/Not Resolved]
  - Emotional distress [Unknown]
  - Blood growth hormone abnormal [Unknown]
